FAERS Safety Report 5542485-3 (Version None)
Quarter: 2007Q4

REPORT INFORMATION
  Report Type: 
  Country: None (occurrence: None)
  Receive Date: 20071210
  Receipt Date: 20071206
  Transmission Date: 20080405
  Serious: Yes (Life-Threatening)
  Sender: FDA-Public Use
  Company Number: IT-ASTRAZENECA-2007SE06058

PATIENT
  Age: 12 Year
  Sex: Male

DRUGS (16)
  1. FOSCAVIR [Suspect]
     Indication: CYTOMEGALOVIRUS INFECTION
     Route: 042
     Dates: start: 20071102, end: 20071104
  2. ACYCLOVIR [Concomitant]
     Route: 048
  3. DESAMETASONE [Concomitant]
  4. DIFLUCAN [Concomitant]
  5. CIPROXIN [Concomitant]
     Dates: start: 20071025, end: 20071104
  6. MEPRAL [Concomitant]
  7. PROZAC [Concomitant]
  8. NUREFLEX [Concomitant]
     Route: 048
  9. ROCALTROL [Concomitant]
  10. DEURSIL [Concomitant]
     Route: 048
  11. PERFALGAN [Concomitant]
     Route: 042
  12. CONTRAMAL [Concomitant]
  13. TRIMETON [Concomitant]
     Indication: PREMEDICATION
     Route: 051
  14. FLEBOCORTID [Concomitant]
     Indication: PREMEDICATION
     Route: 042
  15. CYTOTECT BIOTEST [Concomitant]
     Route: 042
  16. GLUCONAS CAMGCL [Concomitant]
     Indication: PROPHYLAXIS AGAINST DEHYDRATION
     Route: 042

REACTIONS (1)
  - CEREBRAL HAEMORRHAGE [None]
